FAERS Safety Report 7090019-7 (Version None)
Quarter: 2010Q4

REPORT INFORMATION
  Report Type: 
  Country: None (occurrence: None)
  Receive Date: 20101109
  Receipt Date: 20101101
  Transmission Date: 20110411
  Serious: No
  Sender: FDA-Public Use
  Company Number: US-BIOGENIDEC-2010BI038096

PATIENT
  Age: 46 Year
  Sex: Female

DRUGS (1)
  1. TYSABRI [Suspect]
     Indication: MULTIPLE SCLEROSIS
     Route: 042
     Dates: start: 20070625

REACTIONS (6)
  - ABASIA [None]
  - APHASIA [None]
  - COGNITIVE DISORDER [None]
  - DYSARTHRIA [None]
  - GAIT DISTURBANCE [None]
  - MEMORY IMPAIRMENT [None]
